FAERS Safety Report 5453922-7 (Version None)
Quarter: 2007Q3

REPORT INFORMATION
  Report Type: 
  Country: None (occurrence: None)
  Receive Date: 20070917
  Receipt Date: 20070905
  Transmission Date: 20080115
  Serious: Yes (Death, Life-Threatening, Hospitalization)
  Sender: FDA-Public Use
  Company Number: FRWYE181716AUG07

PATIENT
  Sex: Female

DRUGS (10)
  1. TAZOCILLINE [Suspect]
     Indication: INFECTION
     Route: 042
     Dates: start: 20070611, end: 20070617
  2. KARDEGIC [Suspect]
     Route: 048
     Dates: start: 20070501, end: 20070614
  3. TAHOR [Suspect]
     Route: 048
  4. LASIX [Concomitant]
     Route: 042
  5. CIFLOX [Suspect]
     Indication: INFECTION
     Route: 042
     Dates: end: 20070617
  6. TARDYFERON [Concomitant]
     Route: 048
  7. LEVOCARNITINE [Concomitant]
     Route: 042
  8. BISOPROLOL [Concomitant]
     Dosage: 2.5 MG EVERY MORNING AND 1.25 MG EVERY EVENING
     Route: 048
  9. SINTROM [Suspect]
     Indication: ATRIAL FIBRILLATION
     Route: 048
     Dates: start: 20070612, end: 20070614
  10. CORDARONE [Suspect]
     Indication: ATRIAL FIBRILLATION
     Route: 048
     Dates: start: 20070501, end: 20070717

REACTIONS (9)
  - ANAEMIC HYPOXIA [None]
  - ANURIA [None]
  - CONDITION AGGRAVATED [None]
  - HAEMORRHAGIC ANAEMIA [None]
  - MULTI-ORGAN FAILURE [None]
  - PULMONARY ALVEOLAR HAEMORRHAGE [None]
  - PUNCTURE SITE HAEMORRHAGE [None]
  - RENAL FAILURE [None]
  - RENAL IMPAIRMENT [None]
